FAERS Safety Report 8502617-1 (Version None)
Quarter: 2012Q3

REPORT INFORMATION
  Report Type: 
  Country: None (occurrence: None)
  Receive Date: 20120711
  Receipt Date: 20120706
  Transmission Date: 20120928
  Serious: Yes (Other)
  Sender: FDA-Public Use
  Company Number: US-PFIZER INC-2012162631

PATIENT
  Sex: Female
  Weight: 72.562 kg

DRUGS (3)
  1. LYRICA [Suspect]
     Indication: OSTEOARTHRITIS
  2. LYRICA [Suspect]
     Indication: FIBROMYALGIA
     Dosage: 200 MG, 3X/DAY
     Route: 048
  3. MELOXICAM [Concomitant]
     Dosage: UNK

REACTIONS (2)
  - CORONARY ARTERY OCCLUSION [None]
  - CHEST PAIN [None]
